FAERS Safety Report 25433833 (Version 5)
Quarter: 2025Q4

REPORT INFORMATION
  Report Type: Spontaneous
  Country: US (occurrence: US)
  Receive Date: 20250613
  Receipt Date: 20251008
  Transmission Date: 20260118
  Serious: No
  Sender: NOVARTIS
  Company Number: US-002147023-NVSC2025US093899

PATIENT
  Sex: Female

DRUGS (1)
  1. KESIMPTA [Suspect]
     Active Substance: OFATUMUMAB
     Indication: Product used for unknown indication
     Dosage: UNK
     Route: 065
     Dates: start: 20250606

REACTIONS (9)
  - Migraine [Recovering/Resolving]
  - Eye pain [Not Recovered/Not Resolved]
  - Pain [Unknown]
  - Influenza like illness [Unknown]
  - Anxiety [Unknown]
  - Fatigue [Unknown]
  - Insomnia [Recovering/Resolving]
  - Urinary tract infection [Recovered/Resolved]
  - Temperature intolerance [Unknown]
